FAERS Safety Report 18872226 (Version 1)
Quarter: 2021Q1

REPORT INFORMATION
  Report Type: Spontaneous
  Country: US (occurrence: US)
  Receive Date: 20210210
  Receipt Date: 20210210
  Transmission Date: 20210420
  Serious: No
  Sender: FDA-Public Use
  Company Number: None

PATIENT
  Sex: Male

DRUGS (1)
  1. RIVASTIGMINE TARTRATE 1.5MG OR CAPS [Suspect]
     Active Substance: RIVASTIGMINE TARTRATE

REACTIONS (1)
  - Abdominal discomfort [None]
